FAERS Safety Report 21290918 (Version 1)
Quarter: 2022Q3

REPORT INFORMATION
  Report Type: Spontaneous
  Country: US (occurrence: US)
  Receive Date: 20220903
  Receipt Date: 20220903
  Transmission Date: 20221026
  Serious: No
  Sender: FDA-Public Use
  Company Number: US-TEVA-2022-US-2068133

PATIENT
  Sex: Female

DRUGS (1)
  1. COPAXONE [Suspect]
     Active Substance: GLATIRAMER ACETATE
     Indication: Relapsing multiple sclerosis
     Dosage: FORM STRENGTH AND ROUTE OF ADMIN: UNKNOWN
     Route: 065
     Dates: start: 2022

REACTIONS (1)
  - Injection site reaction [Unknown]

NARRATIVE: CASE EVENT DATE: 20220101
